FAERS Safety Report 8089314-4 (Version None)
Quarter: 2012Q1

REPORT INFORMATION
  Report Type: 
  Country: None (occurrence: None)
  Receive Date: 20120128
  Receipt Date: 20110630
  Transmission Date: 20120608
  Serious: No
  Sender: FDA-Public Use
  Company Number: US-ABBOTT-11P-163-0835574-00

PATIENT
  Age: 50 Year
  Sex: Female

DRUGS (5)
  1. NORVASC [Concomitant]
     Indication: BLOOD PRESSURE
  2. HUMIRA [Suspect]
     Indication: RHEUMATOID ARTHRITIS
     Dates: start: 20080101
  3. OXYCONTIN [Concomitant]
     Indication: PAIN
  4. ZOCOR [Concomitant]
     Indication: BLOOD CHOLESTEROL INCREASED
  5. KLONOPIN [Concomitant]
     Indication: ANXIETY
     Dosage: 2-3 DAILY

REACTIONS (4)
  - ARTHRALGIA [None]
  - CARPAL TUNNEL SYNDROME [None]
  - ASTHENIA [None]
  - TENDONITIS [None]
